FAERS Safety Report 8571787-1 (Version None)
Quarter: 2012Q3

REPORT INFORMATION
  Report Type: 
  Country: None (occurrence: None)
  Receive Date: 20120806
  Receipt Date: 20120727
  Transmission Date: 20120928
  Serious: Yes (Hospitalization)
  Sender: FDA-Public Use
  Company Number: US-JNJFOC-20120714904

PATIENT
  Age: 5 Decade
  Sex: Male

DRUGS (10)
  1. BENTYL [Concomitant]
     Indication: ABDOMINAL PAIN
     Dosage: AS NEEDED
     Route: 048
  2. PRILOSEC [Concomitant]
     Route: 048
  3. COGENTIN [Concomitant]
     Route: 048
  4. ATARAX [Concomitant]
     Route: 048
  5. FENOFIBRATE [Concomitant]
     Route: 048
  6. LISINOPRIL [Concomitant]
     Route: 048
  7. NEURONTIN [Concomitant]
     Route: 048
  8. RISPERDAL [Suspect]
     Indication: BIPOLAR DISORDER
     Dosage: 1MG IN AM AND 2 MGIN PM
     Route: 048
  9. HYDROCHLOROTHIAZDE TAB [Concomitant]
     Route: 048
  10. TRAMADOL HCL [Concomitant]
     Route: 048

REACTIONS (1)
  - DEEP VEIN THROMBOSIS [None]
